FAERS Safety Report 6697553-X (Version None)
Quarter: 2010Q2

REPORT INFORMATION
  Report Type: 
  Country: None (occurrence: None)
  Receive Date: 20100426
  Receipt Date: 20100305
  Transmission Date: 20101027
  Serious: No
  Sender: FDA-Public Use
  Company Number: US-ABBOTT-10P-163-0631935-00

PATIENT
  Sex: Female
  Weight: 59.02 kg

DRUGS (9)
  1. AZMACORT [Suspect]
     Indication: ASTHMA
  2. AZMACORT [Suspect]
     Indication: RESPIRATORY DISORDER
  3. NASACORT [Concomitant]
     Indication: SINUS DISORDER
  4. ALLEGRA [Concomitant]
     Indication: HYPERSENSITIVITY
  5. CRESTOR [Concomitant]
     Indication: BLOOD CHOLESTEROL INCREASED
  6. LISINOPRIL [Concomitant]
     Indication: HYPERTENSION
  7. SERTRALINE HCL [Concomitant]
     Indication: DEPRESSION
  8. SERTRALINE HCL [Concomitant]
     Indication: ANXIETY
  9. BENTYL [Concomitant]
     Indication: IRRITABLE BOWEL SYNDROME

REACTIONS (2)
  - DYSPNOEA [None]
  - INSOMNIA [None]
